FAERS Safety Report 5719891-7 (Version None)
Quarter: 2008Q2

REPORT INFORMATION
  Report Type: 
  Country: None (occurrence: None)
  Receive Date: 20080428
  Receipt Date: 20070820
  Transmission Date: 20081010
  Serious: No
  Sender: FDA-Public Use
  Company Number: A0670237A

PATIENT
  Age: 64 Year
  Sex: Female

DRUGS (1)
  1. ONDANSETRON HCL [Suspect]
     Indication: NAUSEA
     Route: 048

REACTIONS (1)
  - DYSGEUSIA [None]
